FAERS Safety Report 24291365 (Version 1)
Quarter: 2024Q3

REPORT INFORMATION
  Report Type: Spontaneous
  Country: US (occurrence: None)
  Receive Date: 20240906
  Receipt Date: 20240906
  Transmission Date: 20241017
  Serious: No
  Sender: DOMPE FARMACEUTICI
  Company Number: US-FARMAPROD-202308-202308-2482

PATIENT
  Age: 77 Year
  Sex: Female

DRUGS (4)
  1. OXERVATE [Suspect]
     Active Substance: CENEGERMIN-BKBJ
     Indication: Neurotrophic keratopathy
     Route: 047
     Dates: start: 20230814
  2. OXERVATE [Suspect]
     Active Substance: CENEGERMIN-BKBJ
  3. EYSUVIS [Concomitant]
     Active Substance: LOTEPREDNOL ETABONATE
  4. COSOPT PF [Concomitant]
     Active Substance: DORZOLAMIDE HYDROCHLORIDE\TIMOLOL MALEATE
     Dosage: 2 %-0.5 %

REACTIONS (3)
  - Eye pain [Not Recovered/Not Resolved]
  - Inappropriate schedule of product administration [Unknown]
  - Dry eye [Unknown]

NARRATIVE: CASE EVENT DATE: 20230801
